FAERS Safety Report 10383902 (Version 1)
Quarter: 2014Q3

REPORT INFORMATION
  Report Type: Spontaneous
  Country: US (occurrence: None)
  Receive Date: 20140813
  Receipt Date: 20140813
  Transmission Date: 20150326
  Serious: Yes (Life-Threatening, Hospitalization)
  Sender: FDA-Public Use
  Company Number: None

PATIENT
  Age: 77 Year
  Sex: Male
  Weight: 71.8 kg

DRUGS (4)
  1. DAPTOMYCIN [Suspect]
     Active Substance: DAPTOMYCIN
     Indication: STAPHYLOCOCCAL INFECTION
     Route: 042
     Dates: start: 20140618, end: 20140730
  2. DAPTOMYCIN [Suspect]
     Active Substance: DAPTOMYCIN
     Indication: DRUG INEFFECTIVE
     Route: 042
     Dates: start: 20140618, end: 20140730
  3. RIFAMPIN. [Concomitant]
     Active Substance: RIFAMPIN
  4. AZITHROMYCIN [Concomitant]
     Active Substance: AZITHROMYCIN ANHYDROUS

REACTIONS (6)
  - Dyspnoea [None]
  - Weight decreased [None]
  - Chills [None]
  - Cough [None]
  - Night sweats [None]
  - Pneumonia [None]

NARRATIVE: CASE EVENT DATE: 20140731
